FAERS Safety Report 13368560 (Version 1)
Quarter: 2017Q1

REPORT INFORMATION
  Report Type: Spontaneous
  Country: US (occurrence: US)
  Receive Date: 20170324
  Receipt Date: 20170324
  Transmission Date: 20170429
  Serious: No
  Sender: FDA-Public Use
  Company Number: US-ELI_LILLY_AND_COMPANY-US201703006750

PATIENT
  Age: 77 Year
  Sex: Female

DRUGS (1)
  1. ADCIRCA [Suspect]
     Active Substance: TADALAFIL
     Indication: PULMONARY HYPERTENSION
     Dosage: 20 MG, UNK
     Route: 048
     Dates: start: 201601

REACTIONS (5)
  - Gastrooesophageal reflux disease [Unknown]
  - Blepharitis [Unknown]
  - Cataract [Unknown]
  - Ocular rosacea [Unknown]
  - Scleral oedema [Unknown]

NARRATIVE: CASE EVENT DATE: 201608
